FAERS Safety Report 5296358-4 (Version None)
Quarter: 2007Q2

REPORT INFORMATION
  Report Type: 
  Country: None (occurrence: None)
  Receive Date: 20070413
  Receipt Date: 20070403
  Transmission Date: 20071010
  Serious: Yes (Hospitalization, Disabling)
  Sender: FDA-Public Use
  Company Number: CH-ROCHE-471196

PATIENT
  Age: 17 Year
  Sex: Female
  Weight: 70 kg

DRUGS (5)
  1. ROACCUTAN [Suspect]
     Indication: ACNE PUSTULAR
     Route: 048
     Dates: start: 20021029, end: 20021220
  2. DIANE-35 [Concomitant]
     Route: 048
     Dates: start: 20021029, end: 20021125
  3. DALACIN T [Concomitant]
     Dosage: REPORTED AS DALACIN T EMULSION.
     Route: 061
     Dates: start: 20010615
  4. 'MYCIN NOS [Concomitant]
     Dosage: REPORTED AS ACNE-MYCIN OINTMENT.
     Route: 061
  5. LUBEX [Concomitant]
     Dosage: REPORTED AS LUBEXYL.
     Route: 061

REACTIONS (10)
  - ACNE [None]
  - ACUTE PSYCHOSIS [None]
  - ANXIETY [None]
  - CONFUSIONAL STATE [None]
  - DEPRESSION [None]
  - ECZEMA ASTEATOTIC [None]
  - PERSONALITY DISORDER [None]
  - SCHIZOAFFECTIVE DISORDER [None]
  - SLEEP DISORDER [None]
  - SUICIDE ATTEMPT [None]
